FAERS Safety Report 4527264-8 (Version None)
Quarter: 2004Q4

REPORT INFORMATION
  Report Type: 
  Country: None (occurrence: None)
  Receive Date: 20041214
  Receipt Date: 20041214
  Transmission Date: 20050328
  Serious: Yes (Other)
  Sender: FDA-Public Use
  Company Number: None

PATIENT
  Age: 59 Year
  Sex: Female
  Weight: 68.0396 kg

DRUGS (2)
  1. VIOXX [Suspect]
     Indication: ARTHRITIS
     Dosage: 1 TAB DAILY
  2. VIOXX [Suspect]
     Indication: PAIN
     Dosage: 1 TAB DAILY

REACTIONS (3)
  - BLOOD PRESSURE INCREASED [None]
  - DIABETES MELLITUS [None]
  - HEART RATE INCREASED [None]
